FAERS Safety Report 12781120 (Version 1)
Quarter: 2016Q3

REPORT INFORMATION
  Report Type: Spontaneous
  Country: US (occurrence: US)
  Receive Date: 20160926
  Receipt Date: 20160926
  Transmission Date: 20161109
  Serious: Yes (Disabling, Other)
  Sender: FDA-Public Use
  Company Number: US-TEVA-695033USA

PATIENT
  Age: 51 Year
  Sex: Female
  Weight: 83.99 kg

DRUGS (2)
  1. ACETAMINOPHEN W/HYDROCODONE [Suspect]
     Active Substance: ACETAMINOPHEN\HYDROCODONE
  2. ACETAMINOPHEN W/HYDROCODONE [Suspect]
     Active Substance: ACETAMINOPHEN\HYDROCODONE
     Indication: PAIN
     Dosage: 2.5 MG/325MG
     Route: 065
     Dates: start: 20160726, end: 20160814

REACTIONS (8)
  - Adverse event [Unknown]
  - Depression [Unknown]
  - Musculoskeletal stiffness [Unknown]
  - Toxicity to various agents [Unknown]
  - Muscle tightness [Unknown]
  - Suspected counterfeit product [Unknown]
  - Disability [Unknown]
  - Drug ineffective [Unknown]

NARRATIVE: CASE EVENT DATE: 20160726
